FAERS Safety Report 8796328 (Version 1)
Quarter: 2012Q4

REPORT INFORMATION
  Report Type: 
  Country: US (occurrence: US)
  Receive Date: 20120919
  Receipt Date: 20120919
  Transmission Date: 20130627
  Serious: Yes (Other)
  Sender: FDA-Public Use
  Company Number: US-PFIZER INC-2012229790

PATIENT
  Age: 87 Year
  Sex: Female

DRUGS (3)
  1. PROPANOLOL HCL [Suspect]
     Indication: HYPERTENSION
     Dosage: 120 mg, 1x/day
     Route: 048
  2. PROPANOLOL HCL [Suspect]
     Indication: HYPERTENSION
     Dosage: 120 mg, 1x/day
     Route: 048
  3. PROPANOLOL HCL [Suspect]
     Indication: HYPERTENSION
     Dosage: 120 mg, 1x/day
     Route: 048

REACTIONS (6)
  - Hypertension [Recovered/Resolved]
  - Hypertension [Recovered/Resolved]
  - Hypertension [Unknown]
  - Fall [Unknown]
  - Head injury [Unknown]
  - Erythema [Unknown]
